FAERS Safety Report 4295818-2 (Version None)
Quarter: 2004Q1

REPORT INFORMATION
  Report Type: 
  Country: None (occurrence: None)
  Receive Date: 20040216
  Receipt Date: 20031113
  Transmission Date: 20041129
  Serious: No
  Sender: FDA-Public Use
  Company Number: US-GLAXOSMITHKLINE-A0439631A

PATIENT
  Age: 54 Year
  Sex: Male

DRUGS (4)
  1. LAMICTAL [Suspect]
     Indication: BIPOLAR DISORDER
     Dosage: 200MG PER DAY
     Route: 048
  2. SEROQUEL [Concomitant]
  3. ATIVAN [Concomitant]
  4. KLONOPIN [Concomitant]

REACTIONS (3)
  - ANXIETY [None]
  - HEART RATE INCREASED [None]
  - INSOMNIA [None]
